FAERS Safety Report 12115810 (Version 2)
Quarter: 2016Q2

REPORT INFORMATION
  Report Type: Spontaneous
  Country: US (occurrence: US)
  Receive Date: 20160225
  Receipt Date: 20160523
  Transmission Date: 20160815
  Serious: No
  Sender: FDA-Public Use
  Company Number: US-GLAXOSMITHKLINE-US2016GSK025159

PATIENT
  Sex: Female

DRUGS (1)
  1. SUMATRIPTAN SOLUTION FOR INJECTION IN PRE-FILLED PEN [Suspect]
     Active Substance: SUMATRIPTAN
     Indication: HEADACHE
     Dosage: 6 MG, U

REACTIONS (3)
  - Injection site haemorrhage [Unknown]
  - Product quality issue [Unknown]
  - Device leakage [Unknown]
